FAERS Safety Report 12896501 (Version 1)
Quarter: 2016Q4

REPORT INFORMATION
  Report Type: Spontaneous
  Country: FR (occurrence: FR)
  Receive Date: 20161031
  Receipt Date: 20161031
  Transmission Date: 20170207
  Serious: Yes (Hospitalization)
  Sender: FDA-Public Use
  Company Number: FR-AUROBINDO-AUR-APL-2016-13342

PATIENT
  Age: 61 Year
  Sex: Female

DRUGS (5)
  1. LEVOFLOXACIN ACTAVIS [Suspect]
     Active Substance: LEVOFLOXACIN
     Indication: ENDOCARDITIS
     Dosage: 500 MG, SINGLE INTAKE
     Route: 042
     Dates: start: 20160905
  2. INEXIUM                            /01479302/ [Suspect]
     Active Substance: ESOMEPRAZOLE MAGNESIUM
     Indication: PROPHYLAXIS
     Dosage: 40 MG THEN 80 MG
     Route: 042
     Dates: start: 20160905, end: 20160906
  3. ACUPAN [Suspect]
     Active Substance: NEFOPAM HYDROCHLORIDE
     Indication: PAIN
     Dosage: 20 MG, ONCE WHEN NEEDED
     Route: 048
     Dates: start: 20160707, end: 20160906
  4. CEFAZOLIN [Suspect]
     Active Substance: CEFAZOLIN
     Indication: ENDOCARDITIS
     Dosage: 2 G, 3 TIMES A DAY
     Route: 042
     Dates: start: 20160830, end: 20160906
  5. ONDANSETRON ACCORD [Suspect]
     Active Substance: ONDANSETRON
     Indication: NAUSEA
     Dosage: 8 MG, ONCE SINGLE INTAKE
     Route: 042
     Dates: start: 20160906

REACTIONS (3)
  - Generalised tonic-clonic seizure [Recovered/Resolved]
  - Electroencephalogram abnormal [Recovered/Resolved]
  - Status epilepticus [Recovered/Resolved]

NARRATIVE: CASE EVENT DATE: 20160906
